FAERS Safety Report 13883359 (Version 1)
Quarter: 2017Q3

REPORT INFORMATION
  Report Type: Spontaneous
  Country: DE (occurrence: DE)
  Receive Date: 20170818
  Receipt Date: 20170818
  Transmission Date: 20171127
  Serious: Yes (Life-Threatening, Hospitalization, Other)
  Sender: FDA-Public Use
  Company Number: DE-DRREDDYS-GER/GER/17/0092468

PATIENT
  Age: 83 Year
  Sex: Female

DRUGS (5)
  1. TRIAMTEREN HCT 50/25 MG [Suspect]
     Active Substance: HYDROCHLOROTHIAZIDE\TRIAMTERENE
     Indication: HYPERTONIA
     Route: 048
     Dates: end: 20170727
  2. CITALOPRAM [Suspect]
     Active Substance: CITALOPRAM HYDROBROMIDE
     Indication: DEPRESSED MOOD
     Route: 048
     Dates: end: 20170727
  3. MACROGOL [Concomitant]
     Active Substance: POLYETHYLENE GLYCOLS
     Indication: PRODUCT USED FOR UNKNOWN INDICATION
  4. SIMVASTATIN. [Concomitant]
     Active Substance: SIMVASTATIN
     Indication: PRODUCT USED FOR UNKNOWN INDICATION
  5. DEKRISTOL 20000 [Concomitant]
     Active Substance: CHOLECALCIFEROL
     Indication: PRODUCT USED FOR UNKNOWN INDICATION

REACTIONS (19)
  - Glycosylated haemoglobin increased [None]
  - Troponin T increased [None]
  - Blood calcium increased [None]
  - Haematocrit decreased [None]
  - Fall [None]
  - Red blood cell count decreased [None]
  - Mean cell haemoglobin concentration increased [None]
  - Blood osmolarity decreased [None]
  - Nausea [Unknown]
  - Blood magnesium decreased [None]
  - Respiratory failure [Unknown]
  - Hyponatraemia [Recovered/Resolved]
  - Hypokalaemia [Recovered/Resolved]
  - Haemoglobin decreased [None]
  - Blood phosphorus decreased [None]
  - Mean cell haemoglobin increased [None]
  - Lumbar vertebral fracture [None]
  - Blood glucose increased [None]
  - Vomiting [Unknown]

NARRATIVE: CASE EVENT DATE: 20170721
